FAERS Safety Report 7865713-8 (Version None)
Quarter: 2011Q4

REPORT INFORMATION
  Report Type: 
  Country: None (occurrence: None)
  Receive Date: 20111028
  Receipt Date: 20110211
  Transmission Date: 20120403
  Serious: No
  Sender: FDA-Public Use
  Company Number: US-GLAXOSMITHKLINE-A0913160A

PATIENT
  Age: 78 Year
  Sex: Male

DRUGS (6)
  1. VERAPAMIL [Concomitant]
  2. ADVAIR DISKUS 100/50 [Suspect]
     Indication: CHRONIC OBSTRUCTIVE PULMONARY DISEASE
     Dosage: 1PUFF TWICE PER DAY
     Route: 055
     Dates: start: 20030101
  3. COLACE [Concomitant]
  4. PREDNISONE [Concomitant]
  5. UNKNOWN MEDICATION [Concomitant]
  6. RED YEAST RICE [Concomitant]

REACTIONS (2)
  - PRODUCT QUALITY ISSUE [None]
  - WHEEZING [None]
